FAERS Safety Report 13789074 (Version 1)
Quarter: 2017Q3

REPORT INFORMATION
  Report Type: Spontaneous
  Country: US (occurrence: US)
  Receive Date: 20170725
  Receipt Date: 20170725
  Transmission Date: 20171127
  Serious: No
  Sender: FDA-Public Use
  Company Number: US-TEVA-781543ACC

PATIENT
  Age: 6 Year
  Sex: Male

DRUGS (1)
  1. GRISEOFULVIN. [Suspect]
     Active Substance: GRISEOFULVIN
     Dosage: 125MG/5ML
     Dates: start: 20170524

REACTIONS (1)
  - Vomiting [Unknown]

NARRATIVE: CASE EVENT DATE: 2017
